FAERS Safety Report 9275666 (Version 1)
Quarter: 2013Q2

REPORT INFORMATION
  Report Type: Spontaneous
  Country: FR (occurrence: None)
  Receive Date: 20130430
  Receipt Date: 20130430
  Transmission Date: 20140414
  Serious: Yes (Hospitalization)
  Sender: FDA-Public Use
  Company Number: 221211

PATIENT
  Age: 76 Year
  Sex: Female

DRUGS (8)
  1. INNOHEP (TINZAPARIN SODIUM) [Suspect]
     Indication: PRODUCT USED FOR UNKNOWN INDICATION
     Route: 058
     Dates: start: 20130311, end: 20130324
  2. VOLTAREN [Suspect]
     Indication: PRODUCT USED FOR UNKNOWN INDICATION
     Route: 048
     Dates: start: 20130311, end: 20130321
  3. LANTUS (INSULIN GLARGINE) [Concomitant]
  4. LYRICA (PREGABALIN) [Concomitant]
  5. PPI (NOS) (PROTON PUMP INHIBITORS) [Concomitant]
  6. CORDARONE (AMIODARONE HYDROCHLORIDE) [Concomitant]
  7. LASILIX (FUROSEMIDE) [Concomitant]
  8. ALDACTONE (SPIRONOLACTONE) [Concomitant]

REACTIONS (4)
  - Haematoma [None]
  - Coagulation time prolonged [None]
  - Haemoglobin decreased [None]
  - Blood creatinine increased [None]
